FAERS Safety Report 6557598-7 (Version None)
Quarter: 2010Q1

REPORT INFORMATION
  Report Type: 
  Country: None (occurrence: None)
  Receive Date: 20100129
  Receipt Date: 20100119
  Transmission Date: 20100710
  Serious: Yes (Hospitalization)
  Sender: FDA-Public Use
  Company Number: PHHY2008US22330

PATIENT
  Sex: Male
  Weight: 129 kg

DRUGS (6)
  1. ERL 080A ERL+TAB [Suspect]
     Indication: RENAL TRANSPLANT
     Dosage: 720 MG, DAILY
     Route: 048
     Dates: start: 20070627
  2. PREDNISOLONE [Concomitant]
     Indication: IMMUNOSUPPRESSION
     Dosage: 5 MG DAILY
     Dates: start: 20080716
  3. VALCYTE [Concomitant]
     Dosage: 900 MG, BID
     Dates: start: 20080722
  4. IMURAN [Concomitant]
  5. VALTREX [Concomitant]
     Dosage: 1000 MG, BID
     Dates: start: 20080811
  6. IMODIUM [Concomitant]
     Dosage: UNK
     Dates: start: 20080922

REACTIONS (8)
  - ABDOMINAL PAIN [None]
  - DEHYDRATION [None]
  - DIARRHOEA [None]
  - EPSTEIN-BARR VIRUS INFECTION [None]
  - LYMPHADENOPATHY [None]
  - OVERGROWTH BACTERIAL [None]
  - PYREXIA [None]
  - WEIGHT DECREASED [None]
